FAERS Safety Report 17567256 (Version 1)
Quarter: 2020Q1

REPORT INFORMATION
  Report Type: Spontaneous
  Country: US (occurrence: US)
  Receive Date: 20200320
  Receipt Date: 20200320
  Transmission Date: 20200409
  Serious: No
  Sender: FDA-Public Use
  Company Number: US-HIKMA PHARMACEUTICALS USA INC.-US-H14001-19-04875

PATIENT
  Age: 82 Year
  Sex: Female
  Weight: 59.02 kg

DRUGS (1)
  1. FLUTICASONE. [Suspect]
     Active Substance: FLUTICASONE
     Indication: ANOSMIA
     Dosage: ONE SPRAY IN EACH NOSTRIL
     Route: 045

REACTIONS (3)
  - Off label use [Not Recovered/Not Resolved]
  - Accidental underdose [Not Recovered/Not Resolved]
  - Product dose omission [Not Recovered/Not Resolved]

NARRATIVE: CASE EVENT DATE: 20190816
